FAERS Safety Report 8086026-8 (Version None)
Quarter: 2012Q1

REPORT INFORMATION
  Report Type: 
  Country: None (occurrence: None)
  Receive Date: 20120128
  Receipt Date: 20110609
  Transmission Date: 20120608
  Serious: Yes (Hospitalization)
  Sender: FDA-Public Use
  Company Number: US-ABBOTT-11P-163-0731473-00

PATIENT
  Age: 65 Year
  Sex: Male
  Weight: 81.72 kg

DRUGS (10)
  1. LEVOTHYROXINE SODIUM [Concomitant]
     Indication: HYPOTHYROIDISM
     Route: 048
  2. SIMVASTATIN [Concomitant]
     Indication: BLOOD CHOLESTEROL INCREASED
     Route: 048
  3. METHOTREXATE [Suspect]
     Indication: PSORIASIS
     Dates: start: 20100401, end: 20110301
  4. ALLOPURINOL [Concomitant]
     Indication: GOUT
     Route: 048
  5. LOPRESSOR [Concomitant]
     Indication: HYPERTENSION
     Route: 048
  6. PREDNISONE TAB [Suspect]
     Indication: PSORIASIS
     Route: 048
     Dates: end: 20110301
  7. HUMIRA [Suspect]
     Indication: PSORIASIS
     Route: 058
     Dates: start: 20110301, end: 20110301
  8. HUMIRA [Suspect]
     Route: 058
     Dates: start: 20110301, end: 20110301
  9. FOLIC ACID [Concomitant]
     Indication: PSORIASIS
     Route: 048
  10. SULFASALAZINE [Concomitant]
     Indication: IRRITABLE BOWEL SYNDROME
     Route: 048

REACTIONS (3)
  - CELLULITIS [None]
  - PAIN OF SKIN [None]
  - ERYTHRODERMIC PSORIASIS [None]
